FAERS Safety Report 20059159 (Version 1)
Quarter: 2021Q4

REPORT INFORMATION
  Report Type: Spontaneous
  Country: CA (occurrence: None)
  Receive Date: 20211111
  Receipt Date: 20211111
  Transmission Date: 20220303
  Serious: Yes (Other)
  Sender: FDA-Public Use
  Company Number: CA-ROCHE-2953429

PATIENT
  Age: 30 Year

DRUGS (4)
  1. TRASTUZUMAB [Suspect]
     Active Substance: TRASTUZUMAB
     Indication: Breast cancer
     Route: 041
  2. CYCLOPHOSPHAMIDE [Concomitant]
     Active Substance: CYCLOPHOSPHAMIDE
  3. DOXORUBICIN [Concomitant]
     Active Substance: DOXORUBICIN
  4. TAXOL [Concomitant]
     Active Substance: PACLITAXEL

REACTIONS (1)
  - Treatment failure [Unknown]
